FAERS Safety Report 19316541 (Version 3)
Quarter: 2021Q4

REPORT INFORMATION
  Report Type: Report from Study
  Country: CN (occurrence: CN)
  Receive Date: 20210527
  Receipt Date: 20211029
  Transmission Date: 20220304
  Serious: Yes (Death, Life-Threatening)
  Sender: FDA-Public Use
  Company Number: 2021A462872

PATIENT
  Age: 31367 Day
  Sex: Female

DRUGS (1)
  1. OSIMERTINIB [Suspect]
     Active Substance: OSIMERTINIB
     Indication: Non-small cell lung cancer
     Route: 048
     Dates: start: 20210401, end: 20210520

REACTIONS (3)
  - Death [Fatal]
  - Hypoalbuminaemia [Not Recovered/Not Resolved]
  - Blood creatinine increased [Not Recovered/Not Resolved]

NARRATIVE: CASE EVENT DATE: 20210519
